FAERS Safety Report 10074402 (Version 1)
Quarter: 2014Q2

REPORT INFORMATION
  Report Type: Spontaneous
  Country: US (occurrence: US)
  Receive Date: 20140411
  Receipt Date: 20140411
  Transmission Date: 20141212
  Serious: No
  Sender: FDA-Public Use
  Company Number: US-SANOFI-AVENTIS-2013SA073081

PATIENT
  Age: 64 Year
  Sex: Male
  Weight: 83.9 kg

DRUGS (6)
  1. ALLEGRA D [Suspect]
     Indication: NASAL CONGESTION
     Dosage: DOSE:60 MG/120 MG
     Route: 048
     Dates: start: 20130708, end: 20130711
  2. ALLEGRA D [Suspect]
     Indication: HYPERSENSITIVITY
     Dosage: DOSE:60 MG/120 MG
     Route: 048
     Dates: start: 20130708, end: 20130711
  3. ATENOLOL [Concomitant]
  4. ZOLOFT [Concomitant]
  5. CLONAZEPAM [Concomitant]
  6. PHENERGAN [Concomitant]

REACTIONS (2)
  - Blood pressure increased [Recovered/Resolved]
  - Headache [Recovered/Resolved]
